FAERS Safety Report 13704078 (Version 4)
Quarter: 2017Q3

REPORT INFORMATION
  Report Type: Report from Study
  Country: None (occurrence: DE)
  Receive Date: 20170629
  Receipt Date: 20170804
  Transmission Date: 20171127
  Serious: Yes (Hospitalization)
  Sender: FDA-Public Use
  Company Number: DE-ABBVIE-17K-062-2023530-00

PATIENT
  Age: 69 Year
  Sex: Female
  Weight: 60 kg

DRUGS (7)
  1. DUODOPA [Suspect]
     Active Substance: CARBIDOPA\LEVODOPA
     Indication: PARKINSON^S DISEASE
     Dosage: MD: 8.5ML; CRD: 2.9ML/H; ED: 1.0ML
     Route: 050
     Dates: start: 20130621, end: 20170624
  2. MADOPAR [Concomitant]
     Active Substance: BENSERAZIDE HYDROCHLORIDE\LEVODOPA
     Indication: PARKINSON^S DISEASE
     Dosage: 50/12.5 MG
     Route: 048
  3. MADOPAR [Concomitant]
     Active Substance: BENSERAZIDE HYDROCHLORIDE\LEVODOPA
     Dosage: 100/25 MG?6 AM, 12 AM, 6 PM
     Route: 048
  4. DUODOPA [Suspect]
     Active Substance: CARBIDOPA\LEVODOPA
     Dosage: MD 8.5ML; CRD 2.9ML/H; ED 1.0ML?7 AM TO 11 PM, PAUSE AT NIGHT
     Route: 050
     Dates: start: 201706
  5. RASAGILIN [Concomitant]
     Indication: PARKINSON^S DISEASE
     Route: 048
  6. MADOPAR DEPOT [Concomitant]
     Active Substance: BENSERAZIDE HYDROCHLORIDE\LEVODOPA
     Indication: PARKINSON^S DISEASE
     Route: 048
  7. ALENDRONIC ACID [Concomitant]
     Active Substance: ALENDRONIC ACID
     Indication: OSTEOPOROSIS

REACTIONS (4)
  - Device dislocation [Unknown]
  - Stoma site inflammation [Recovering/Resolving]
  - Stoma site discharge [Unknown]
  - Fall [Unknown]

NARRATIVE: CASE EVENT DATE: 20161204
